FAERS Safety Report 26093728 (Version 1)
Quarter: 2025Q4

REPORT INFORMATION
  Report Type: Spontaneous
  Country: EU (occurrence: EU)
  Receive Date: 20251126
  Receipt Date: 20251126
  Transmission Date: 20260118
  Serious: Yes (Other)
  Sender: REGENERON
  Company Number: EU-BAYER-2025A154616

PATIENT
  Age: 59 Year
  Sex: Female

DRUGS (1)
  1. EYLEA HD [Suspect]
     Active Substance: AFLIBERCEPT
     Indication: Product used for unknown indication
     Dosage: UNK, SOLUTION FOR INJECTION, 114.3 MG/ML
     Dates: start: 20251002

REACTIONS (4)
  - Anterior chamber disorder [Unknown]
  - Endophthalmitis [Unknown]
  - Ocular hyperaemia [Unknown]
  - Eye pain [Unknown]
